FAERS Safety Report 4441334-4 (Version None)
Quarter: 2004Q3

REPORT INFORMATION
  Report Type: 
  Country: None (occurrence: None)
  Receive Date: 20040728
  Receipt Date: 20040326
  Transmission Date: 20050211
  Serious: No
  Sender: FDA-Public Use
  Company Number: USA040363357

PATIENT
  Sex: Male

DRUGS (2)
  1. STRATTERA [Suspect]
     Dosage: 60 MG DAY
     Dates: start: 20030501
  2. CONCERTA (METHYLPHENIDATE HYDRCHLORIDE) [Concomitant]

REACTIONS (5)
  - DYSPEPSIA [None]
  - HYPERSOMNIA [None]
  - INSOMNIA [None]
  - SENSATION OF FOREIGN BODY [None]
  - SOMNOLENCE [None]
